FAERS Safety Report 9334493 (Version 2)
Quarter: 2013Q3

REPORT INFORMATION
  Report Type: Spontaneous
  Country: IN (occurrence: IN)
  Receive Date: 20130606
  Receipt Date: 20130703
  Transmission Date: 20140515
  Serious: Yes (Death, Other)
  Sender: FDA-Public Use
  Company Number: IN-BAXTER-2013BAX020406

PATIENT
  Age: 65 Year
  Sex: Male
  Weight: 63 kg

DRUGS (8)
  1. FLOSEAL HEMOSTATIC MATRIX [Suspect]
     Indication: HAEMORRHAGE
     Dates: start: 20130323
  2. FLOSEAL HEMOSTATIC MATRIX [Suspect]
     Indication: HEPATECTOMY
  3. SURGICEL NU-KNIT [Concomitant]
     Indication: HEPATECTOMY
     Route: 065
  4. ISOFLURANE [Concomitant]
     Indication: ANAESTHESIA PROCEDURE
     Route: 065
  5. TAGNUM [Concomitant]
     Indication: PRODUCT USED FOR UNKNOWN INDICATION
     Route: 042
  6. TRAMADOL [Concomitant]
     Indication: PRODUCT USED FOR UNKNOWN INDICATION
     Route: 042
  7. PANTOPRAZOLE [Concomitant]
     Indication: PRODUCT USED FOR UNKNOWN INDICATION
     Route: 042
  8. DYNAPAR [Concomitant]
     Indication: PRODUCT USED FOR UNKNOWN INDICATION
     Route: 042

REACTIONS (5)
  - Death [Fatal]
  - Renal impairment [Unknown]
  - Blood bilirubin increased [Unknown]
  - Post procedural complication [None]
  - Blood pressure decreased [None]
